FAERS Safety Report 5416000-9 (Version None)
Quarter: 2007Q3

REPORT INFORMATION
  Report Type: 
  Country: None (occurrence: None)
  Receive Date: 20070815
  Receipt Date: 20070808
  Transmission Date: 20080115
  Serious: Yes (Hospitalization)
  Sender: FDA-Public Use
  Company Number: US-BAYER-200712654BWH

PATIENT
  Age: 58 Year
  Sex: Male
  Weight: 87 kg

DRUGS (14)
  1. NEXAVAR [Suspect]
     Indication: METASTATIC MALIGNANT MELANOMA
     Dosage: TOTAL DAILY DOSE: 800 MG  UNIT DOSE: 200 MG
     Route: 048
     Dates: start: 20070530, end: 20070703
  2. TEMOZOLOMIDE [Suspect]
     Dosage: TOTAL DAILY DOSE: 305 MG
     Route: 048
     Dates: start: 20070605, end: 20070703
  3. LIPITOR [Concomitant]
     Dosage: TOTAL DAILY DOSE: 20 MG
  4. ZOLOFT [Concomitant]
     Dosage: TOTAL DAILY DOSE: 50 MG
  5. ATENELOL [Concomitant]
     Dosage: TOTAL DAILY DOSE: 50 MG
  6. LISINOPRIL [Concomitant]
     Dosage: TOTAL DAILY DOSE: 20 MG
  7. NEXIUM [Concomitant]
     Dosage: TOTAL DAILY DOSE: 40 MG
     Route: 048
  8. ATIVAN [Concomitant]
     Dosage: TOTAL DAILY DOSE: 2 MG
  9. M.V.I. [Concomitant]
     Dosage: TOTAL DAILY DOSE: 1 DF
  10. ASPIRIN [Concomitant]
     Dosage: TOTAL DAILY DOSE: 81 MG
     Route: 048
  11. ACETAMINOPHEN [Concomitant]
     Route: 048
  12. SENOKOT [Concomitant]
     Dosage: TOTAL DAILY DOSE: 2 DF
     Route: 048
  13. DEXAMETHASONE 0.5MG TAB [Concomitant]
     Dosage: TOTAL DAILY DOSE: 16 DF
     Route: 048
     Dates: start: 20070628
  14. AMBIEN [Concomitant]
     Dosage: TOTAL DAILY DOSE: 10 MG
     Route: 048
     Dates: start: 20070703

REACTIONS (1)
  - INTESTINAL OBSTRUCTION [None]
